FAERS Safety Report 4288722-7 (Version None)
Quarter: 2004Q1

REPORT INFORMATION
  Report Type: 
  Country: None (occurrence: None)
  Receive Date: 20040209
  Receipt Date: 20040203
  Transmission Date: 20041129
  Serious: Yes (Hospitalization)
  Sender: FDA-Public Use
  Company Number: WAES 0402USA00286

PATIENT
  Age: 55 Year
  Sex: Male

DRUGS (3)
  1. [THERAPY UNSPECIFIED] [Concomitant]
  2. VASOTEC [Concomitant]
     Route: 048
     Dates: start: 20040117
  3. ZOCOR [Suspect]
     Indication: DYSLIPIDAEMIA
     Route: 048
     Dates: start: 20040124

REACTIONS (2)
  - ARTHRALGIA [None]
  - ARTHROPATHY [None]
